FAERS Safety Report 5521217-9 (Version None)
Quarter: 2007Q4

REPORT INFORMATION
  Report Type: 
  Country: None (occurrence: None)
  Receive Date: 20071119
  Receipt Date: 20071113
  Transmission Date: 20080405
  Serious: Yes (Hospitalization, Other)
  Sender: FDA-Public Use
  Company Number: JP-ALLERGAN-0711558US

PATIENT
  Sex: Male

DRUGS (4)
  1. BOTOX [Suspect]
     Indication: MUSCLE SPASMS
     Dosage: UNK, SINGLE
     Route: 030
     Dates: start: 20070626, end: 20070626
  2. BOTOX [Suspect]
     Indication: MUSCLE SPASMS
     Dosage: UNK, SINGLE
     Route: 030
     Dates: start: 20070626, end: 20070626
  3. BOTOX [Suspect]
     Indication: MUSCLE SPASMS
     Dosage: 480 UNITS, SINGLE
     Route: 030
     Dates: start: 20070918, end: 20070918
  4. TAMSULOSIN HCL [Concomitant]
     Indication: NEUROGENIC BLADDER
     Dosage: 0.2 MG, QD
     Route: 048
     Dates: start: 20070806

REACTIONS (4)
  - BENIGN PROSTATIC HYPERPLASIA [None]
  - NEPHROLITHIASIS [None]
  - PROSTATE CANCER [None]
  - URINARY TRACT INFECTION [None]
